FAERS Safety Report 14382829 (Version 3)
Quarter: 2018Q4

REPORT INFORMATION
  Report Type: Report from Study
  Country: TR (occurrence: TR)
  Receive Date: 20180113
  Receipt Date: 20181016
  Transmission Date: 20190204
  Serious: Yes (Life-Threatening)
  Sender: FDA-Public Use
  Company Number: TR-ASTRAZENECA-2018SE02856

PATIENT
  Sex: Female
  Weight: 66 kg

DRUGS (2)
  1. AZD2281 [Suspect]
     Active Substance: OLAPARIB
     Indication: OVARIAN CANCER
     Route: 048
     Dates: start: 20170620, end: 20180102
  2. AZACITIDINE. [Concomitant]
     Active Substance: AZACITIDINE
     Indication: ANAEMIA
     Dates: start: 20170620, end: 20181011

REACTIONS (1)
  - Myelodysplastic syndrome [Recovered/Resolved]
